FAERS Safety Report 7090218-4 (Version None)
Quarter: 2010Q4

REPORT INFORMATION
  Report Type: 
  Country: None (occurrence: None)
  Receive Date: 20101105
  Receipt Date: 20101105
  Transmission Date: 20110411
  Serious: Yes (Hospitalization, Other)
  Sender: FDA-Public Use
  Company Number: None

PATIENT
  Sex: Female
  Weight: 58.9676 kg

DRUGS (2)
  1. CARBATROL [Suspect]
     Indication: NEUROPATHY PERIPHERAL
     Dosage: 200MG BID PO
     Route: 048
     Dates: start: 20100929, end: 20101103
  2. CARBATROL [Suspect]
     Dosage: 300MG BID PO
     Route: 048
     Dates: start: 20100929, end: 20101103

REACTIONS (5)
  - DYSPHAGIA [None]
  - LARYNGOSPASM [None]
  - OROPHARYNGEAL PAIN [None]
  - PRODUCT QUALITY ISSUE [None]
  - SPEECH DISORDER [None]
